FAERS Safety Report 16428770 (Version 2)
Quarter: 2019Q3

REPORT INFORMATION
  Report Type: Spontaneous
  Country: US (occurrence: US)
  Receive Date: 20190613
  Receipt Date: 20190725
  Transmission Date: 20191004
  Serious: No
  Sender: FDA-Public Use
  Company Number: US-GILEAD-2019-0413418

PATIENT
  Age: 44 Year
  Sex: Female
  Weight: 62.13 kg

DRUGS (3)
  1. VEMLIDY [Suspect]
     Active Substance: TENOFOVIR ALAFENAMIDE FUMARATE
     Indication: HEPATITIS B
     Dosage: 25 MG, QD
     Route: 048
     Dates: start: 20180703
  2. BROFED [Concomitant]
  3. ATORVASTIN [Concomitant]
     Active Substance: ATORVASTATIN
     Indication: LIPIDS INCREASED
     Dosage: 10 MG
     Route: 048

REACTIONS (1)
  - Tooth resorption [Unknown]

NARRATIVE: CASE EVENT DATE: 201906
